FAERS Safety Report 5341195-5 (Version None)
Quarter: 2007Q2

REPORT INFORMATION
  Report Type: 
  Country: None (occurrence: None)
  Receive Date: 20070405
  Receipt Date: 20061127
  Transmission Date: 20071010
  Serious: No
  Sender: FDA-Public Use
  Company Number: US200611004741

PATIENT
  Age: 55 Year
  Sex: Female

DRUGS (6)
  1. CYMBALTA [Suspect]
     Indication: DEPRESSION
     Dosage: SEE IMAGE
     Route: 048
     Dates: start: 20060101, end: 20061101
  2. CYMBALTA [Suspect]
     Indication: DEPRESSION
     Dosage: SEE IMAGE
     Route: 048
     Dates: start: 20060901
  3. AVAPRO [Concomitant]
  4. SYNTHROID [Concomitant]
  5. DIAZEPAM [Concomitant]
  6. HYDROCODONE (HYDROCODONE) [Concomitant]

REACTIONS (3)
  - DIARRHOEA [None]
  - DYSKINESIA [None]
  - EATING DISORDER SYMPTOM [None]
